FAERS Safety Report 19986638 (Version 1)
Quarter: 2021Q4

REPORT INFORMATION
  Report Type: Spontaneous
  Country: US (occurrence: US)
  Receive Date: 20211022
  Receipt Date: 20211022
  Transmission Date: 20220303
  Serious: No
  Sender: FDA-Public Use
  Company Number: US-SANOFI-00818598

PATIENT
  Sex: Male

DRUGS (2)
  1. AMBIEN CR [Suspect]
     Active Substance: ZOLPIDEM TARTRATE
     Indication: Insomnia
     Dosage: DRUG STRUCTURE DOSAGE : 12.5 MG DRUG INTERVAL DOSAGE : NIGHTLY
     Dates: end: 20211017
  2. JANSSEN COVID-19 VACCINE [Suspect]
     Active Substance: AD26.COV2.S
     Dosage: UNK

REACTIONS (4)
  - Blood glucose abnormal [Unknown]
  - Nausea [Unknown]
  - Headache [Unknown]
  - Therapeutic response decreased [Unknown]
